FAERS Safety Report 12997062 (Version 2)
Quarter: 2017Q1

REPORT INFORMATION
  Report Type: Spontaneous
  Country: DE (occurrence: DE)
  Receive Date: 20161205
  Receipt Date: 20170226
  Transmission Date: 20170428
  Serious: Yes (Other)
  Sender: FDA-Public Use
  Company Number: DE-DEXPHARM-20162293

PATIENT
  Age: 74 Year
  Sex: Female

DRUGS (5)
  1. VITAMIN B COMPLEX [Concomitant]
     Active Substance: CYANOCOBALAMIN\DEXPANTHENOL\NIACINAMIDE\PYRIDOXINE HYDROCHLORIDE\RIBOFLAVIN 5^-PHOSPHATE SODIUM\THIAMINE HYDROCHLORIDE\VITAMIN B COMPLEX
     Route: 048
  2. ISOMONIT [Suspect]
     Active Substance: ISOSORBIDE MONONITRATE
     Route: 048
  3. PIPAMPERONE [Suspect]
     Active Substance: PIPAMPERONE
     Dosage: MAX 20MG AS NEEDED
     Route: 048
     Dates: start: 20150501
  4. ASPIRIN. [Concomitant]
     Active Substance: ASPIRIN
     Route: 048
  5. DONEPEZIL. [Suspect]
     Active Substance: DONEPEZIL
     Route: 048
     Dates: start: 20150430

REACTIONS (6)
  - Ventricular extrasystoles [None]
  - Drug interaction [Unknown]
  - Syncope [None]
  - Haematoma [None]
  - Fall [Recovered/Resolved]
  - Wound haemorrhage [None]

NARRATIVE: CASE EVENT DATE: 20150501
